FAERS Safety Report 6874006-7 (Version None)
Quarter: 2010Q3

REPORT INFORMATION
  Report Type: 
  Country: None (occurrence: None)
  Receive Date: 20100723
  Receipt Date: 20090324
  Transmission Date: 20110219
  Serious: Yes (Other)
  Sender: FDA-Public Use
  Company Number: US-PFIZER INC-2009189471

PATIENT
  Sex: Female

DRUGS (2)
  1. CHANTIX [Suspect]
     Indication: SMOKING CESSATION THERAPY
     Dosage: UNK: 1X/DAY
     Dates: start: 20090218, end: 20090323
  2. KLONOPIN [Concomitant]
     Dosage: UNK

REACTIONS (1)
  - MULTIPLE SCLEROSIS RELAPSE [None]
